FAERS Safety Report 9826214 (Version 1)
Quarter: 2013Q4

REPORT INFORMATION
  Report Type: Spontaneous
  Country: GB (occurrence: None)
  Receive Date: 20131112
  Receipt Date: 20131112
  Transmission Date: 20140711
  Serious: Yes (Life-Threatening, Hospitalization)
  Sender: FDA-Public Use
  Company Number: E2B_00000646

PATIENT
  Age: 72 Year
  Sex: Female

DRUGS (4)
  1. LISINOPRIL (UNKNOWN (LISINOPRIL) [Suspect]
     Indication: HYPERTENSION
     Route: 048
     Dates: start: 201210, end: 20130217
  2. DILTIAZEM (UNKNOWN) [Concomitant]
  3. METOPROLOL (UNKNOWN) [Concomitant]
  4. GLYCEROL TRINITRATE (GTN)(UNKNOWN) [Concomitant]

REACTIONS (1)
  - Angioedema [None]
